FAERS Safety Report 6607935-X (Version None)
Quarter: 2010Q1

REPORT INFORMATION
  Report Type: 
  Country: None (occurrence: None)
  Receive Date: 20100301
  Receipt Date: 20100223
  Transmission Date: 20100710
  Serious: Yes (Hospitalization, Other)
  Sender: FDA-Public Use
  Company Number: US-BAYER-US-2006-017927

PATIENT
  Age: 52 Year
  Sex: Female
  Weight: 96 kg

DRUGS (25)
  1. CLIMARA [Suspect]
     Indication: MENOPAUSAL SYMPTOMS
     Dosage: UNK MG/D, CONT
     Route: 062
     Dates: start: 19960101, end: 19980101
  2. PREMPRO [Suspect]
     Indication: MENOPAUSAL SYMPTOMS
     Dosage: 0.625/2.5 MG, UNK
     Dates: start: 19980101, end: 20030301
  3. PROVERA [Suspect]
     Indication: MENOPAUSAL SYMPTOMS
     Dosage: 10 MG, UNK
     Dates: start: 19940101, end: 19980101
  4. ESTRACE [Suspect]
     Indication: MENOPAUSAL SYMPTOMS
     Dosage: 1 MG, UNK
     Dates: start: 19940101, end: 19960101
  5. ASPIRIN [Concomitant]
     Dosage: UNK, UNK
     Dates: start: 19950101, end: 20050801
  6. ATENOLOL [Concomitant]
     Indication: HYPERTENSION
     Dosage: UNIT DOSE: 50 MG
     Dates: start: 19920101
  7. LISINOPRIL [Concomitant]
     Dosage: UNK, UNK
     Dates: end: 20050801
  8. PRAVACHOL [Concomitant]
     Indication: BLOOD CHOLESTEROL INCREASED
     Dosage: UNIT DOSE: 40 MG
  9. CARDIZEM CD [Concomitant]
  10. GEMFIBROZIL [Concomitant]
     Dates: start: 20060627
  11. MULTI-VITAMIN [Concomitant]
     Route: 048
  12. CALTRATE 600+D [Concomitant]
     Route: 048
  13. FOLIC ACID [Concomitant]
     Dosage: 1MG TABS
     Route: 048
  14. NORTRIPTYLINE HCL [Concomitant]
     Dates: start: 20080630, end: 20090118
  15. NORTRIPTYLINE HCL [Concomitant]
     Dates: start: 20070724
  16. FLUOXETINE [Concomitant]
     Dates: start: 20071226
  17. PRAVASTATIN [Concomitant]
     Dates: start: 20080312
  18. CLONAZEPAM [Concomitant]
     Dates: start: 20080415
  19. OXYCODONE HCL AND ACETAMINOPHEN [Concomitant]
     Dosage: 5MG/325MG TABLETS
     Dates: start: 20080924
  20. PROMETHAZINE W/ CODEINE [Concomitant]
     Dates: start: 20081208
  21. AVELOX [Concomitant]
     Dates: start: 20081208
  22. PANTOPRAZOLE [Concomitant]
     Dates: start: 20090116
  23. CHANTIX [Concomitant]
     Dates: start: 20090529
  24. CHERATUSSIN AC [Concomitant]
     Dates: start: 20090103
  25. AMOXICILLIN [Concomitant]
     Dates: start: 20090415

REACTIONS (7)
  - BREAST MASS [None]
  - CHOLECYSTITIS CHRONIC [None]
  - CHOLELITHIASIS [None]
  - GASTRITIS [None]
  - OVARIAN CANCER [None]
  - UMBILICAL HERNIA [None]
  - UTERINE LEIOMYOMA [None]
